FAERS Safety Report 16843947 (Version 1)
Quarter: 2019Q3

REPORT INFORMATION
  Report Type: Spontaneous
  Country: US (occurrence: US)
  Receive Date: 20190802
  Receipt Date: 20190802
  Transmission Date: 20191005
  Serious: Yes (Disabling, Other)
  Sender: FDA-Public Use
  Company Number: None

PATIENT
  Age: 73 Year
  Sex: Male
  Weight: 111.13 kg

DRUGS (1)
  1. ALTACHLORE SODIUM CHLORIDE HYPERTONICITY [Suspect]
     Active Substance: SODIUM CHLORIDE
     Indication: CORNEAL OEDEMA
     Dosage: 1 DROP 1X/DAY L EYE
     Route: 047
     Dates: start: 20190610, end: 20190705

REACTIONS (4)
  - Sudden hearing loss [None]
  - Balance disorder [None]
  - Recalled product administered [None]
  - Ear infection viral [None]

NARRATIVE: CASE EVENT DATE: 20190717
